FAERS Safety Report 10135799 (Version 1)
Quarter: 2014Q2

REPORT INFORMATION
  Report Type: Report from Study
  Country: US (occurrence: US)
  Receive Date: 20140428
  Receipt Date: 20140428
  Transmission Date: 20141212
  Serious: Yes (Hospitalization, Other)
  Sender: FDA-Public Use
  Company Number: US-ABBVIE-14P-163-1227522-00

PATIENT
  Age: 29 Year
  Sex: Female

DRUGS (7)
  1. HUMIRA [Suspect]
     Indication: CROHN^S DISEASE
     Route: 058
     Dates: start: 20140201, end: 20140201
  2. HUMIRA [Suspect]
     Route: 058
     Dates: start: 20140215, end: 20140215
  3. HUMIRA [Suspect]
     Route: 058
     Dates: end: 20140315
  4. FOLIC ACID [Concomitant]
     Indication: CROHN^S DISEASE
     Route: 048
  5. POTASSIUM [Concomitant]
     Indication: PRODUCT USED FOR UNKNOWN INDICATION
     Route: 048
  6. ZOLOFT [Concomitant]
     Indication: PRODUCT USED FOR UNKNOWN INDICATION
     Route: 048
  7. PREDNISONE [Concomitant]
     Indication: PRODUCT USED FOR UNKNOWN INDICATION
     Route: 048

REACTIONS (6)
  - Gastrointestinal inflammation [Unknown]
  - Diarrhoea [Unknown]
  - Abdominal pain [Recovering/Resolving]
  - Frequent bowel movements [Unknown]
  - Abdominal pain [Recovering/Resolving]
  - Crohn^s disease [Recovering/Resolving]
